FAERS Safety Report 15005145 (Version 1)
Quarter: 2018Q2

REPORT INFORMATION
  Report Type: Spontaneous
  Country: US (occurrence: US)
  Receive Date: 20180613
  Receipt Date: 20180613
  Transmission Date: 20180711
  Serious: Yes (Hospitalization, Other)
  Sender: FDA-Public Use
  Company Number: US-GLAXOSMITHKLINE-US2018104386

PATIENT
  Sex: Female

DRUGS (2)
  1. ASPIRIN (BABY) [Concomitant]
     Active Substance: ASPIRIN
     Dosage: UNK
  2. CARVEDILOL. [Suspect]
     Active Substance: CARVEDILOL
     Indication: HYPERTENSION
     Dosage: 12.5 MG, UNK
     Dates: start: 2013

REACTIONS (8)
  - Hospitalisation [Unknown]
  - Presyncope [Recovered/Resolved]
  - Blood pressure increased [Recovered/Resolved]
  - Apparent death [Unknown]
  - Agitation [Unknown]
  - Ill-defined disorder [Unknown]
  - Blood pressure decreased [Recovered/Resolved]
  - Drug dispensing error [Unknown]

NARRATIVE: CASE EVENT DATE: 2013
